FAERS Safety Report 8377882-4 (Version None)
Quarter: 2012Q2

REPORT INFORMATION
  Report Type: 
  Country: None (occurrence: None)
  Receive Date: 20120522
  Receipt Date: 20120515
  Transmission Date: 20120825
  Serious: Yes (Other)
  Sender: FDA-Public Use
  Company Number: US-PFIZER INC-2012084606

PATIENT
  Sex: Male

DRUGS (19)
  1. CYCLOBENAZPRINE [Interacting]
     Indication: BACK PAIN
  2. CLINDAMYCIN [Concomitant]
     Dosage: 300 MG, 3X/DAY
  3. FUROSEMIDE [Concomitant]
     Dosage: 80 MG, 2X/DAY
  4. POTASSIUM CHLORIDE [Concomitant]
     Dosage: 20 MEQ, 2X/DAY
  5. ASPIRIN [Concomitant]
     Dosage: 325 (NO UNITS PROVIDED)
  6. LOSARTAN [Concomitant]
     Dosage: 50  (NO UNITS PROVIDED), DAILY
  7. WARFARIN [Concomitant]
     Dosage: UNK
  8. DOXYCYCLINE [Concomitant]
     Dosage: 50 (NO UNITS PROVIDED), DAILY
  9. SALMETEROL XINAFOATE/FLUTICASONE PROPIONATE [Concomitant]
     Dosage: 500/50 (UNITS NOT PROVIDED), 2X/DAY
  10. TIKOSYN [Interacting]
     Dosage: UNK
     Route: 048
     Dates: start: 20120404
  11. MAG-OX [Concomitant]
     Dosage: 400 (NO UNITS PROVIDED), 2X/DAY
  12. ALLOPURINOL [Concomitant]
     Dosage: 100 MG, 2X/DAY
  13. TIKOSYN [Suspect]
     Indication: ATRIAL FIBRILLATION
     Dosage: 250 UG, 2X/DAY
     Route: 048
     Dates: start: 20110101, end: 20120403
  14. PRAVASTATIN [Concomitant]
     Dosage: 20 (NO UNITS PROVIDED), DAILY
  15. HYDROCODONE BITARTRATE + ACETAMINOPHEN [Concomitant]
     Dosage: 7.5/300 (NO UNITS PROVIDED), 3X/DAY
  16. CYCLOBENAZPRINE [Interacting]
     Indication: BACK DISORDER
     Dosage: 10 MG, HS
     Route: 048
     Dates: end: 20120403
  17. MULTI-VITAMINS [Concomitant]
     Dosage: UNK
  18. LABETALOL [Concomitant]
     Dosage: 100 MG, 2X/DAY
  19. VITAMIN D2 [Concomitant]
     Dosage: 5000 IU, WEEKLY

REACTIONS (2)
  - DRUG INTERACTION [None]
  - ELECTROCARDIOGRAM QT PROLONGED [None]
